FAERS Safety Report 9955194 (Version 1)
Quarter: 2014Q1

REPORT INFORMATION
  Report Type: Spontaneous
  Country: US (occurrence: US)
  Receive Date: 20140304
  Receipt Date: 20140304
  Transmission Date: 20141002
  Serious: Yes (Hospitalization, Other)
  Sender: FDA-Public Use
  Company Number: US-B.I. PHARMACEUTICALS,INC./RIDGEFIELD-2014-BI-08756BP

PATIENT
  Age: 86 Year
  Sex: Male
  Weight: 91 kg

DRUGS (1)
  1. MIRAPEX [Suspect]
     Indication: RESTLESS LEGS SYNDROME
     Dosage: 0.125 MG
     Route: 048
     Dates: start: 2002, end: 2008

REACTIONS (11)
  - Cerebrovascular accident [Not Recovered/Not Resolved]
  - Blindness [Not Recovered/Not Resolved]
  - Restless legs syndrome [Recovered/Resolved]
  - Hallucination [Recovered/Resolved]
  - Insomnia [Recovered/Resolved]
  - Hypokinesia [Not Recovered/Not Resolved]
  - Dysarthria [Not Recovered/Not Resolved]
  - Dry mouth [Not Recovered/Not Resolved]
  - Increased upper airway secretion [Not Recovered/Not Resolved]
  - Rhinorrhoea [Not Recovered/Not Resolved]
  - Headache [Not Recovered/Not Resolved]
